FAERS Safety Report 4445419-8 (Version None)
Quarter: 2004Q3

REPORT INFORMATION
  Report Type: 
  Country: None (occurrence: None)
  Receive Date: 20040802
  Receipt Date: 20040511
  Transmission Date: 20050211
  Serious: No
  Sender: FDA-Public Use
  Company Number: 2004-116261-NL

PATIENT
  Age: 36 Year
  Sex: Female
  Weight: 63.6 kg

DRUGS (3)
  1. NUVARING [Suspect]
     Indication: ADNEXA UTERI PAIN
     Dosage: DF DAILY VAGINAL
     Route: 067
     Dates: start: 20040502, end: 20040512
  2. NUVARING [Suspect]
     Indication: HAEMORRHAGE
     Dosage: DF DAILY VAGINAL
     Route: 067
     Dates: start: 20040502, end: 20040512
  3. NUVARING [Suspect]
     Indication: HORMONE REPLACEMENT THERAPY
     Dosage: DF DAILY VAGINAL
     Route: 067
     Dates: start: 20040502, end: 20040512

REACTIONS (3)
  - DIZZINESS [None]
  - FATIGUE [None]
  - OEDEMA PERIPHERAL [None]
